FAERS Safety Report 24162143 (Version 6)
Quarter: 2024Q3

REPORT INFORMATION
  Report Type: Spontaneous
  Country: US (occurrence: US)
  Receive Date: 20240801
  Receipt Date: 20240902
  Transmission Date: 20241017
  Serious: Yes (Other)
  Sender: ROCHE
  Company Number: US-ROCHE-10000033149

PATIENT
  Age: 78 Year
  Sex: Male

DRUGS (2)
  1. VABYSMO [Suspect]
     Active Substance: FARICIMAB\FARICIMAB-SVOA
     Indication: Retinal vein occlusion
     Route: 050
     Dates: start: 202311
  2. VABYSMO [Suspect]
     Active Substance: FARICIMAB\FARICIMAB-SVOA
     Indication: Macular oedema

REACTIONS (4)
  - Macular ischaemia [Not Recovered/Not Resolved]
  - Blindness [Unknown]
  - Visual impairment [Not Recovered/Not Resolved]
  - Off label use [Unknown]
